FAERS Safety Report 6613102-6 (Version None)
Quarter: 2010Q1

REPORT INFORMATION
  Report Type: 
  Country: None (occurrence: None)
  Receive Date: 20100223
  Receipt Date: 20100203
  Transmission Date: 20100710
  Serious: Yes (Death)
  Sender: FDA-Public Use
  Company Number: 2010EU000580

PATIENT
  Age: 30 Year

DRUGS (1)
  1. PROTOPIC [Suspect]
     Indication: DERMATITIS ATOPIC

REACTIONS (2)
  - PRURITUS [None]
  - T-CELL LYMPHOMA [None]
